FAERS Safety Report 8815853 (Version 1)
Quarter: 2012Q4

REPORT INFORMATION
  Report Type: 
  Country: US (occurrence: US)
  Receive Date: 20120928
  Receipt Date: 20120928
  Transmission Date: 20130627
  Serious: Yes (Hospitalization, Disabling)
  Sender: FDA-Public Use
  Company Number: US-009507513-1209USA009048

PATIENT
  Age: 49 Year
  Sex: Female

DRUGS (2)
  1. TEMODAR [Suspect]
     Indication: GLIOBLASTOMA MULTIFORME
     Dosage: 150 mg/m2, Cyclical for the first 5 days
     Route: 048
  2. TEMODAR [Suspect]
     Dosage: 75 mg/m2, UNK

REACTIONS (1)
  - Pneumocystis jiroveci pneumonia [Not Recovered/Not Resolved]
